FAERS Safety Report 4885366-0 (Version None)
Quarter: 2005Q4

REPORT INFORMATION
  Report Type: 
  Country: None (occurrence: None)
  Receive Date: 20051222
  Receipt Date: 20050316
  Transmission Date: 20060501
  Serious: Yes (Hospitalization)
  Sender: FDA-Public Use
  Company Number: 399030

PATIENT
  Age: 69 Year
  Sex: Male

DRUGS (6)
  1. TICLID [Suspect]
     Indication: CORONARY ARTERIAL STENT INSERTION
     Dosage: 250 MG 2 PER DAY ORAL
     Route: 048
     Dates: start: 20050302, end: 20050311
  2. TICLID [Suspect]
     Indication: PROPHYLAXIS
     Dosage: 250 MG 2 PER DAY ORAL
     Route: 048
     Dates: start: 20050302, end: 20050311
  3. PLAVIX [Suspect]
     Indication: CORONARY ARTERIAL STENT INSERTION
     Dosage: ORAL
     Route: 048
     Dates: start: 20050206, end: 20050213
  4. PLAVIX [Suspect]
     Indication: PROPHYLAXIS
     Dosage: ORAL
     Route: 048
     Dates: start: 20050206, end: 20050213
  5. ASPIRIN [Concomitant]
  6. ALDACTONE [Concomitant]

REACTIONS (1)
  - RASH [None]
